FAERS Safety Report 7236629-5 (Version None)
Quarter: 2011Q1

REPORT INFORMATION
  Report Type: 
  Country: None (occurrence: None)
  Receive Date: 20110112
  Receipt Date: 20101231
  Transmission Date: 20110831
  Serious: Yes (Hospitalization)
  Sender: FDA-Public Use
  Company Number: IDR-00444

PATIENT
  Sex: Female

DRUGS (1)
  1. INDERAL LA [Suspect]
     Dosage: DOSE TEXT: 1/2 CAPSULE DAILY ORAL FORMULATION: CAPSULE CONTR REL
     Route: 048

REACTIONS (1)
  - BLOOD SODIUM DECREASED [None]
